FAERS Safety Report 18927683 (Version 1)
Quarter: 2021Q1

REPORT INFORMATION
  Report Type: Spontaneous
  Country: US (occurrence: US)
  Receive Date: 20210223
  Receipt Date: 20210223
  Transmission Date: 20210420
  Serious: Yes (Hospitalization)
  Sender: FDA-Public Use
  Company Number: None

PATIENT
  Age: 67 Year
  Sex: Male
  Weight: 101.4 kg

DRUGS (1)
  1. ERBITUX [Suspect]
     Active Substance: CETUXIMAB
     Dates: end: 20210105

REACTIONS (3)
  - Tachycardia [None]
  - Acute myocardial infarction [None]
  - Coronary artery disease [None]

NARRATIVE: CASE EVENT DATE: 20210111
